FAERS Safety Report 18693895 (Version 2)
Quarter: 2021Q1

REPORT INFORMATION
  Report Type: Report from Study
  Country: NL (occurrence: NL)
  Receive Date: 20210104
  Receipt Date: 20210120
  Transmission Date: 20210419
  Serious: Yes (Hospitalization, Other)
  Sender: FDA-Public Use
  Company Number: NVSC2020NL341878

PATIENT
  Age: 64 Year
  Sex: Female
  Weight: 56.6 kg

DRUGS (3)
  1. PARACETAMOL [Concomitant]
     Active Substance: ACETAMINOPHEN
     Indication: PRODUCT USED FOR UNKNOWN INDICATION
     Dosage: 500 MG 4DD2
     Route: 065
  2. BYL719 [Suspect]
     Active Substance: ALPELISIB
     Indication: BREAST CANCER
     Dosage: 300 MG
     Route: 048
     Dates: start: 20201201, end: 20201219
  3. METOCLOPRAMIDE. [Concomitant]
     Active Substance: METOCLOPRAMIDE
     Indication: PRODUCT USED FOR UNKNOWN INDICATION
     Dosage: 10 MG 3DD2
     Route: 065

REACTIONS (14)
  - C-reactive protein increased [Unknown]
  - Rash [Unknown]
  - Thrombocytopenia [Recovered/Resolved]
  - Agranulocytosis [Unknown]
  - Blood glucose increased [Unknown]
  - Sinus tachycardia [Unknown]
  - Febrile neutropenia [Recovered/Resolved]
  - Pancytopenia [Unknown]
  - Anaemia [Recovering/Resolving]
  - Lymphopenia [Unknown]
  - Mucosal inflammation [Recovering/Resolving]
  - Leukopenia [Unknown]
  - Metastases to bone [Unknown]
  - Body temperature increased [Unknown]

NARRATIVE: CASE EVENT DATE: 20201218
